FAERS Safety Report 18591789 (Version 3)
Quarter: 2021Q1

REPORT INFORMATION
  Report Type: Spontaneous
  Country: HU (occurrence: HU)
  Receive Date: 20201208
  Receipt Date: 20210122
  Transmission Date: 20210419
  Serious: Yes (Life-Threatening, Hospitalization, Other)
  Sender: FDA-Public Use
  Company Number: HU-VELOXIS PHARMACEUTICALS-2020VELHU-000990

PATIENT
  Age: 59 Year
  Sex: Female

DRUGS (17)
  1. ENVARSUS XR [Interacting]
     Active Substance: TACROLIMUS
     Dosage: UNK UNK, UNKNOWN FREQ.
     Route: 065
     Dates: start: 20160430, end: 2020
  2. ADVAGRAF [Suspect]
     Active Substance: TACROLIMUS
     Indication: IMMUNOSUPPRESSION
     Dosage: 9 MG, ONCE DAILY (LONG?ACTING FORMULATION)
     Route: 048
     Dates: start: 2020, end: 2020
  3. METOPROLOL. [Suspect]
     Active Substance: METOPROLOL
     Indication: PRODUCT USED FOR UNKNOWN INDICATION
     Dosage: UNK
     Route: 065
     Dates: end: 2020
  4. GUANFACINE. [Concomitant]
     Active Substance: GUANFACINE
     Indication: HYPERTENSION
     Dosage: UNK
  5. ENVARSUS XR [Interacting]
     Active Substance: TACROLIMUS
     Dosage: 9 MG, ONCE DAILY (LONG?ACTING FORMULATION)
     Route: 048
     Dates: start: 2020, end: 2020
  6. ADVAGRAF [Suspect]
     Active Substance: TACROLIMUS
     Dosage: 1.5 MG, QD
  7. ENVARSUS XR [Interacting]
     Active Substance: TACROLIMUS
     Dosage: 0.5 MG, ONCE DAILY (LONG?ACTING FORMULATION)
     Route: 048
     Dates: start: 202005, end: 202005
  8. EVEROLIMUS. [Suspect]
     Active Substance: EVEROLIMUS
     Indication: PRODUCT USED FOR UNKNOWN INDICATION
     Dosage: 0.75 MG, QD
     Dates: start: 202005
  9. DOXAZOSIN [Suspect]
     Active Substance: DOXAZOSIN MESYLATE
     Indication: HYPERTENSION
     Dosage: UNK
  10. ADVAGRAF [Suspect]
     Active Substance: TACROLIMUS
     Dosage: 1.5 MG, ONCE DAILY (MORNING) (LONG?ACTING FORMULATION)
     Route: 048
     Dates: start: 2020
  11. ENVARSUS XR [Interacting]
     Active Substance: TACROLIMUS
     Indication: IMMUNOSUPPRESSION
     Dosage: UNK, UNKNOWN FREQ.
     Route: 065
     Dates: end: 2020
  12. ALLOPURINOL. [Suspect]
     Active Substance: ALLOPURINOL
     Indication: PRODUCT USED FOR UNKNOWN INDICATION
     Dosage: UNK
  13. ENVARSUS XR [Suspect]
     Active Substance: TACROLIMUS
     Indication: PROPHYLAXIS AGAINST TRANSPLANT REJECTION
     Dosage: UNK, UNKNOWN FREQ.
     Route: 065
     Dates: start: 2020, end: 2020
  14. INDAPAMID [Concomitant]
     Active Substance: INDAPAMIDE
     Indication: HYPERTENSION
     Dosage: UNK
  15. EVEROLIMUS. [Suspect]
     Active Substance: EVEROLIMUS
     Indication: PROPHYLAXIS AGAINST TRANSPLANT REJECTION
     Dosage: 1.75 MG, QD
     Dates: start: 202005
  16. CARVEDILOL. [Interacting]
     Active Substance: CARVEDILOL
     Indication: HYPERTENSION
     Dosage: 50 MG, QD
     Route: 065
     Dates: start: 202005
  17. ADVAGRAF [Suspect]
     Active Substance: TACROLIMUS
     Indication: HEART TRANSPLANT
     Dosage: 9 MG, ONCE DAILY (LONG?ACTING FORMULATION)
     Route: 048
     Dates: start: 2020, end: 2020

REACTIONS (21)
  - Renal failure [Not Recovered/Not Resolved]
  - Blood pressure increased [Recovered/Resolved]
  - Drug level increased [Recovered/Resolved]
  - Drug interaction [Recovered/Resolved]
  - Off label use [Unknown]
  - Blood uric acid increased [Unknown]
  - Hypertension [Unknown]
  - Urinary tract infection [Recovered/Resolved]
  - Cardiac aneurysm [Unknown]
  - Transplant rejection [Unknown]
  - Anaemia [Unknown]
  - Myocardial infarction [Unknown]
  - Electrocardiogram ST-T segment abnormal [Unknown]
  - Cardiac disorder [Unknown]
  - Immunosuppressant drug level increased [Recovered/Resolved]
  - Renal disorder [Unknown]
  - Blood pressure increased [Recovered/Resolved]
  - Glomerular filtration rate decreased [Unknown]
  - Renal impairment [Unknown]
  - Cardiac failure [Unknown]
  - Blood urea increased [Unknown]

NARRATIVE: CASE EVENT DATE: 20180530
